FAERS Safety Report 9776226 (Version 2)
Quarter: 2013Q4

REPORT INFORMATION
  Report Type: Spontaneous
  Country: JP (occurrence: JP)
  Receive Date: 20131220
  Receipt Date: 20131226
  Transmission Date: 20140711
  Serious: No
  Sender: FDA-Public Use
  Company Number: JP-EISAI INC-E2020-13362-SPO-JP

PATIENT
  Age: 82 Year
  Sex: Male

DRUGS (10)
  1. ARICEPT [Suspect]
     Indication: DEMENTIA ALZHEIMER^S TYPE
     Route: 048
     Dates: start: 2011, end: 20121211
  2. ARICEPT [Suspect]
     Dosage: UNKNOWN
     Route: 048
     Dates: start: 20130701
  3. AMLODIN OD [Concomitant]
     Indication: HYPERTENSION
     Dosage: 5 MG DAILY
     Route: 048
  4. PROHEPARUM [Concomitant]
     Indication: PRODUCT USED FOR UNKNOWN INDICATION
     Route: 048
  5. DEZOLAM [Concomitant]
     Indication: INSOMNIA
     Dosage: 0.5 MG DAILY
     Route: 048
  6. FLUITRAN [Concomitant]
     Indication: PRODUCT USED FOR UNKNOWN INDICATION
     Dosage: UNKNOWN
     Route: 048
  7. RETICOLAN [Concomitant]
     Indication: PRODUCT USED FOR UNKNOWN INDICATION
     Dosage: 3 MG DAILY
     Route: 048
  8. OPAPROSMON [Concomitant]
     Indication: PRODUCT USED FOR UNKNOWN INDICATION
     Dosage: 5 MG DAILY
     Route: 048
  9. MYSLEE [Concomitant]
     Indication: INSOMNIA
     Dosage: 5 MG DAILY
     Route: 048
  10. DIOVAN [Concomitant]
     Indication: PRODUCT USED FOR UNKNOWN INDICATION
     Dosage: 80 MG DAILY
     Route: 048

REACTIONS (2)
  - Atrioventricular block first degree [Recovered/Resolved]
  - Syncope [Recovering/Resolving]
